FAERS Safety Report 4353930-3 (Version None)
Quarter: 2004Q2

REPORT INFORMATION
  Report Type: 
  Country: None (occurrence: None)
  Receive Date: 20040506
  Receipt Date: 20040119
  Transmission Date: 20050107
  Serious: No
  Sender: FDA-Public Use
  Company Number: US-GLAXOSMITHKLINE-A0494297A

PATIENT
  Age: 67 Year
  Sex: Male

DRUGS (7)
  1. AVANDAMET [Suspect]
     Indication: ILL-DEFINED DISORDER
     Route: 048
     Dates: start: 20031001
  2. AMARYL [Concomitant]
  3. ZOCOR [Concomitant]
  4. MICARDIS [Concomitant]
  5. ASPIRIN [Concomitant]
  6. FUROSEMIDE [Concomitant]
  7. UNKNOWN MEDICATION [Concomitant]

REACTIONS (2)
  - ABDOMINAL DISTENSION [None]
  - CHEST PAIN [None]
